FAERS Safety Report 18718434 (Version 2)
Quarter: 2021Q4

REPORT INFORMATION
  Report Type: Spontaneous
  Country: AU (occurrence: AU)
  Receive Date: 20210108
  Receipt Date: 20211003
  Transmission Date: 20220303
  Serious: Yes (Life-Threatening, Hospitalization, Other)
  Sender: FDA-Public Use
  Company Number: AU-GRUNENTHAL-2020-102922

PATIENT
  Sex: Male

DRUGS (13)
  1. TRAMADOL HYDROCHLORIDE [Interacting]
     Active Substance: TRAMADOL HYDROCHLORIDE
     Indication: Product used for unknown indication
     Dosage: 1000 MILLIGRAM, ONCE
     Route: 065
     Dates: start: 20191107, end: 20191108
  2. ACETAMINOPHEN [Interacting]
     Active Substance: ACETAMINOPHEN
     Indication: Product used for unknown indication
     Dosage: 55 GRAM, ONCE
     Route: 065
     Dates: start: 20191107, end: 20191108
  3. ACETAMINOPHEN [Interacting]
     Active Substance: ACETAMINOPHEN
     Route: 065
     Dates: start: 20191107, end: 20191108
  4. ACETAMINOPHEN [Interacting]
     Active Substance: ACETAMINOPHEN
     Route: 065
  5. ESCITALOPRAM [Interacting]
     Active Substance: ESCITALOPRAM OXALATE
     Indication: Product used for unknown indication
     Dosage: 280 MILLIGRAM, ONCE
     Route: 065
     Dates: start: 20191107, end: 20191108
  6. MOCLOBEMIDE [Interacting]
     Active Substance: MOCLOBEMIDE
     Indication: Product used for unknown indication
     Dosage: 15900 MILLIGRAM, ONCE
     Route: 065
     Dates: start: 20191107, end: 20191108
  7. MOCLOBEMIDE [Interacting]
     Active Substance: MOCLOBEMIDE
     Dosage: UNK
     Route: 065
  8. VENLAFAXINE [Interacting]
     Active Substance: VENLAFAXINE HYDROCHLORIDE
     Indication: Product used for unknown indication
     Dosage: 900 MILLIGRAM, ONCE
     Route: 065
     Dates: start: 20191107, end: 20191108
  9. AMLODIPINE\VALSARTAN [Suspect]
     Active Substance: AMLODIPINE\VALSARTAN
     Indication: Product used for unknown indication
     Dosage: 28 DOSAGE FORM, ONCE
     Route: 065
     Dates: start: 20191107, end: 20191108
  10. FLUOXETINE [Interacting]
     Active Substance: FLUOXETINE HYDROCHLORIDE
     Indication: Product used for unknown indication
     Dosage: 560 MILLIGRAM, ONCE
     Route: 065
     Dates: start: 20191107, end: 20191108
  11. ESOMEPRAZOLE. [Suspect]
     Active Substance: ESOMEPRAZOLE MAGNESIUM
     Indication: Product used for unknown indication
     Dosage: 560 MILLIGRAM, ONCE
     Route: 065
     Dates: start: 20191107, end: 20191108
  12. ESOMEPRAZOLE. [Suspect]
     Active Substance: ESOMEPRAZOLE MAGNESIUM
     Dosage: 20 MILLIGRAM
     Route: 065
  13. XELJANZ [Suspect]
     Active Substance: TOFACITINIB CITRATE
     Indication: Product used for unknown indication
     Dosage: 280 MILLIGRAM, ONCE
     Route: 065
     Dates: start: 20191107, end: 20191108

REACTIONS (9)
  - Suicide attempt [Recovered/Resolved]
  - Metabolic acidosis [Recovered/Resolved]
  - Acute kidney injury [Recovered/Resolved]
  - Physical deconditioning [Recovered/Resolved]
  - Major depression [Recovered/Resolved]
  - Serotonin syndrome [Recovered/Resolved]
  - Drug interaction [Recovered/Resolved]
  - Cognitive disorder [Unknown]
  - Intentional overdose [Recovered/Resolved]

NARRATIVE: CASE EVENT DATE: 20191101
